FAERS Safety Report 9954020 (Version 1)
Quarter: 2014Q1

REPORT INFORMATION
  Report Type: Spontaneous
  Country: US (occurrence: US)
  Receive Date: 20140304
  Receipt Date: 20140304
  Transmission Date: 20141002
  Serious: No
  Sender: FDA-Public Use
  Company Number: US-TARO-2014P1000287

PATIENT
  Age: 50 Year
  Sex: Female
  Weight: 86.18 kg

DRUGS (6)
  1. LAMOTRIGINE TABLETS 100 MG [Suspect]
     Indication: CONVULSION
     Route: 048
     Dates: start: 201401
  2. LAMOTRIGINE TABLETS 100 MG [Suspect]
     Indication: CONVULSION
     Route: 048
     Dates: start: 201401
  3. BABY ASPIRIN [Concomitant]
  4. PRAVASTATIN [Concomitant]
  5. CITALOPRAM [Concomitant]
  6. METOPROLOL [Concomitant]

REACTIONS (5)
  - Hyperhidrosis [Not Recovered/Not Resolved]
  - Tremor [Not Recovered/Not Resolved]
  - Dizziness [Not Recovered/Not Resolved]
  - Feeling abnormal [Not Recovered/Not Resolved]
  - Product substitution issue [Not Recovered/Not Resolved]
